FAERS Safety Report 9071875 (Version 1)
Quarter: 2013Q1

REPORT INFORMATION
  Report Type: Report from Study
  Country: US (occurrence: US)
  Receive Date: 20130129
  Receipt Date: 20130129
  Transmission Date: 20140127
  Serious: No
  Sender: FDA-Public Use
  Company Number: US-ABBOTT-12P-163-0929824-00

PATIENT
  Sex: Male
  Weight: 97.61 kg

DRUGS (7)
  1. HUMIRA 40 MG/0.8 ML PEN [Suspect]
     Indication: RHEUMATOID ARTHRITIS
     Dates: start: 20111228
  2. PERCOCET [Concomitant]
     Indication: PAIN
     Dosage: 10/325 MG FOUR TIMES DAILY
  3. DIOVAN [Concomitant]
     Indication: HYPERTENSION
  4. LEXAPRO [Concomitant]
     Indication: DEPRESSION
  5. PRAVASTATIN [Concomitant]
     Indication: BLOOD CHOLESTEROL INCREASED
  6. ZERTEC [Concomitant]
     Indication: SEASONAL ALLERGY
  7. UNKNOWN EPIDURAL SHOTS [Concomitant]
     Indication: INTERVERTEBRAL DISC PROTRUSION
     Dosage: SHOTS
     Route: 008

REACTIONS (2)
  - Asthenia [Not Recovered/Not Resolved]
  - Rheumatoid arthritis [Not Recovered/Not Resolved]
